FAERS Safety Report 9521960 (Version 2)
Quarter: 2013Q3

REPORT INFORMATION
  Report Type: Spontaneous
  Country: FR (occurrence: FR)
  Receive Date: 20130913
  Receipt Date: 20130913
  Transmission Date: 20140515
  Serious: Yes (Life-Threatening, Hospitalization)
  Sender: FDA-Public Use
  Company Number: FR-ROCHE-1251981

PATIENT
  Age: 65 Year
  Sex: Male
  Weight: 96 kg

DRUGS (14)
  1. ROACTEMRA [Suspect]
     Indication: RHEUMATOID ARTHRITIS
     Route: 042
     Dates: start: 20121003
  2. ROACTEMRA [Suspect]
     Route: 042
     Dates: end: 20130108
  3. ROACTEMRA [Suspect]
     Route: 042
     Dates: end: 20130208
  4. ROACTEMRA [Suspect]
     Route: 042
     Dates: start: 20130305
  5. ROACTEMRA [Suspect]
     Route: 042
     Dates: start: 20130604
  6. INEXIUM [Concomitant]
     Route: 065
  7. LEXOMIL [Concomitant]
     Dosage: 1/4 TABLET IN THE EVENING
     Route: 065
  8. SKENAN [Concomitant]
     Route: 065
  9. CONTRAMAL [Concomitant]
     Route: 065
  10. NEFOPAM [Concomitant]
     Route: 065
  11. PARACETAMOL [Concomitant]
     Route: 065
  12. LOVENOX [Concomitant]
     Dosage: ONLT EVENING
     Route: 058
  13. SOLUPRED (FRANCE) [Concomitant]
     Dosage: IN MORNING
     Route: 065
  14. HYDROCORTISONE HEMISUCCINATE [Concomitant]

REACTIONS (4)
  - Septic shock [Recovered/Resolved]
  - Device related infection [Not Recovered/Not Resolved]
  - Endocarditis [Not Recovered/Not Resolved]
  - Renal failure acute [Not Recovered/Not Resolved]
